FAERS Safety Report 20127627 (Version 2)
Quarter: 2022Q1

REPORT INFORMATION
  Report Type: Spontaneous
  Country: IL (occurrence: IL)
  Receive Date: 20211129
  Receipt Date: 20220122
  Transmission Date: 20220424
  Serious: Yes (Hospitalization)
  Sender: FDA-Public Use
  Company Number: IL-TEVA-2021-IL-1982470

PATIENT
  Age: 34 Year
  Sex: Male

DRUGS (1)
  1. FILGRASTIM [Suspect]
     Active Substance: FILGRASTIM
     Indication: Drug therapy
     Route: 065

REACTIONS (3)
  - Glomerulonephritis [Recovering/Resolving]
  - Epistaxis [Unknown]
  - Acute kidney injury [Recovering/Resolving]
